FAERS Safety Report 12625450 (Version 1)
Quarter: 2016Q3

REPORT INFORMATION
  Report Type: Spontaneous
  Country: US (occurrence: US)
  Receive Date: 20160805
  Receipt Date: 20160805
  Transmission Date: 20161109
  Serious: No
  Sender: FDA-Public Use
  Company Number: US-PFIZER INC-2016339768

PATIENT
  Age: 72 Year
  Sex: Female

DRUGS (1)
  1. SINEQUAN [Suspect]
     Active Substance: DOXEPIN HYDROCHLORIDE

REACTIONS (1)
  - Drug ineffective [Unknown]
